FAERS Safety Report 14762425 (Version 5)
Quarter: 2018Q3

REPORT INFORMATION
  Report Type: Spontaneous
  Country: US (occurrence: US)
  Receive Date: 20180416
  Receipt Date: 20180918
  Transmission Date: 20181010
  Serious: Yes (Other)
  Sender: FDA-Public Use
  Company Number: US-ASTRAZENECA-2011BM12973

PATIENT
  Age: 18549 Day
  Sex: Female
  Weight: 97.5 kg

DRUGS (21)
  1. CRESTOR [Concomitant]
     Active Substance: ROSUVASTATIN CALCIUM
     Indication: BLOOD CHOLESTEROL
     Route: 048
  2. EXCEDRIN [Concomitant]
     Active Substance: ACETAMINOPHEN\ASPIRIN\CAFFEINE
  3. LANSOPRAZOLE. [Concomitant]
     Active Substance: LANSOPRAZOLE
     Indication: GASTROOESOPHAGEAL REFLUX DISEASE
     Route: 048
  4. DULCOLAX NOS [Concomitant]
     Active Substance: BISACODYL OR DOCUSATE SODIUM
     Indication: FAECES SOFT
     Route: 048
  5. BYDUREON BCISE [Suspect]
     Active Substance: EXENATIDE
     Indication: TYPE 2 DIABETES MELLITUS
     Route: 058
     Dates: start: 20180203
  6. FISH OIL [Concomitant]
     Active Substance: FISH OIL
     Route: 048
  7. MULTIVITAMIN [Concomitant]
     Active Substance: VITAMINS
     Dosage: 50 PLUS ONCE DAILY
     Route: 048
  8. ATORVASTATIN [Concomitant]
     Active Substance: ATORVASTATIN
     Indication: BLOOD CHOLESTEROL
     Route: 048
  9. GABAPENTIN. [Concomitant]
     Active Substance: GABAPENTIN
     Indication: HYPERSENSITIVITY
     Route: 048
     Dates: start: 20170713
  10. METFORMIN [Concomitant]
     Active Substance: METFORMIN HYDROCHLORIDE
     Indication: TYPE 2 DIABETES MELLITUS
     Route: 048
  11. BYETTA [Suspect]
     Active Substance: EXENATIDE
     Indication: TYPE 2 DIABETES MELLITUS
     Route: 058
     Dates: start: 20111216, end: 20121023
  12. ASPIRIN. [Concomitant]
     Active Substance: ASPIRIN
     Indication: SPINAL CORD INFARCTION
     Route: 048
     Dates: start: 20150608
  13. BACLOFEN. [Concomitant]
     Active Substance: BACLOFEN
     Indication: SPINAL CORD INFARCTION
     Dosage: 10 MG A HALF OF PILL IN THE A.M. AND A WHOLE PILL IN THE P.M
     Route: 048
  14. VITAMIN D3 [Concomitant]
     Active Substance: CHOLECALCIFEROL
  15. ZYRTEC [Concomitant]
     Active Substance: CETIRIZINE HYDROCHLORIDE
     Indication: MULTIPLE ALLERGIES
  16. IBUPROFEN. [Concomitant]
     Active Substance: IBUPROFEN
  17. TANZIUM [Concomitant]
     Indication: TYPE 2 DIABETES MELLITUS
     Dosage: 50 MG, UNKNOWN
     Dates: start: 20160402, end: 20180127
  18. BYDUREON [Suspect]
     Active Substance: EXENATIDE
     Indication: TYPE 2 DIABETES MELLITUS
     Route: 058
     Dates: start: 20121024, end: 20160326
  19. PREVACID [Concomitant]
     Active Substance: LANSOPRAZOLE
     Dosage: UNK UNK, QD
     Route: 048
  20. LANTUS [Concomitant]
     Active Substance: INSULIN GLARGINE
     Indication: TYPE 2 DIABETES MELLITUS
     Dosage: 14 UNITS EVERY NIGHT
     Route: 058
     Dates: start: 201506
  21. SUPER COMPLEX B [Concomitant]
     Route: 048

REACTIONS (21)
  - Cerebrovascular accident [Recovered/Resolved]
  - Insomnia [Unknown]
  - General physical health deterioration [Recovered/Resolved]
  - Injection site pain [Recovered/Resolved]
  - Injection site haemorrhage [Recovered/Resolved]
  - Incorrect dose administered [Unknown]
  - Paraplegia [Unknown]
  - Injection site bruising [Unknown]
  - Underdose [Unknown]
  - Panic reaction [Recovered/Resolved]
  - Weight fluctuation [Unknown]
  - Device malfunction [Unknown]
  - Stress [Unknown]
  - Nausea [Recovering/Resolving]
  - Migraine [Recovered/Resolved]
  - Needle issue [Unknown]
  - Spinal cord infarction [Unknown]
  - Sinus disorder [Unknown]
  - Paralysis [Unknown]
  - Blood glucose fluctuation [Unknown]
  - Vomiting [Recovered/Resolved]

NARRATIVE: CASE EVENT DATE: 20111217
